FAERS Safety Report 18956311 (Version 1)
Quarter: 2021Q1

REPORT INFORMATION
  Report Type: Spontaneous
  Country: CN (occurrence: CN)
  Receive Date: 20210301
  Receipt Date: 20210301
  Transmission Date: 20210420
  Serious: Yes (Other)
  Sender: FDA-Public Use
  Company Number: CN-BAXTER-2021BAX003775

PATIENT
  Age: 48 Year
  Sex: Female
  Weight: 57 kg

DRUGS (13)
  1. METHYLPREDNISOLONE SODIUM SUCCINATE. [Concomitant]
     Active Substance: METHYLPREDNISOLONE SODIUM SUCCINATE
     Indication: ALLERGY PROPHYLAXIS
     Route: 065
     Dates: start: 20210124
  2. POTASSIUM [Concomitant]
     Active Substance: POTASSIUM
     Indication: PROPHYLAXIS
     Route: 065
     Dates: start: 20210124
  3. ENDOXAN [Suspect]
     Active Substance: CYCLOPHOSPHAMIDE
     Indication: INVASIVE DUCTAL BREAST CARCINOMA
     Dosage: ENDOXAN + NS 100 ML
     Route: 041
     Dates: start: 20210124, end: 20210124
  4. PIRARUBICIN HYDROCHLORIDE [Suspect]
     Active Substance: PIRARUBICIN HYDROCHLORIDE
     Indication: INVASIVE DUCTAL BREAST CARCINOMA
     Dosage: PIRARUBICIN HYDROCHLORIDE + 5% GS 100 ML
     Route: 041
     Dates: start: 20210124, end: 20210124
  5. ENDOXAN [Suspect]
     Active Substance: CYCLOPHOSPHAMIDE
     Dosage: DOSE RE?INTRODUCED, ENDOXAN + NS
     Route: 041
  6. 0.9% SODIUM CHLORIDE INJECTION [Suspect]
     Active Substance: SODIUM CHLORIDE
     Indication: MEDICATION DILUTION
     Dosage: NS + ENDOXAN 900 MG
     Route: 041
     Dates: start: 20210124, end: 20210124
  7. 5% GLUCOSE  INJECTION [Suspect]
     Active Substance: DEXTROSE
     Indication: MEDICATION DILUTION
     Dosage: 5% GS + PIRARUBICIN HYDROCHLORIDE 70 MG
     Route: 041
     Dates: start: 20210124, end: 20210124
  8. 5% GLUCOSE  INJECTION [Suspect]
     Active Substance: DEXTROSE
     Dosage: DOSE RE?INTRODUCED, 5% GS + PIRARUBICIN HYDROCHLORIDE
     Route: 041
  9. PIRARUBICIN HYDROCHLORIDE [Suspect]
     Active Substance: PIRARUBICIN HYDROCHLORIDE
     Dosage: DOSE RE?INTRODUCED, PIRARUBICIN HYDROCHLORIDE + 5% GS
     Route: 041
  10. PANTOPRAZOLE [Concomitant]
     Active Substance: PANTOPRAZOLE
     Indication: PROPHYLAXIS
     Route: 065
     Dates: start: 20210124
  11. TROPISETRON [Concomitant]
     Active Substance: TROPISETRON
     Indication: PROPHYLAXIS OF NAUSEA AND VOMITING
     Route: 065
     Dates: start: 20210124
  12. 0.9% SODIUM CHLORIDE INJECTION [Suspect]
     Active Substance: SODIUM CHLORIDE
     Dosage: DOSE RE?INTRODUCED, NS + ENDOXAN
     Route: 041
  13. TIOPRONIN [Concomitant]
     Active Substance: TIOPRONIN
     Indication: PROPHYLAXIS
     Route: 065
     Dates: start: 20210124

REACTIONS (1)
  - Myelosuppression [Recovered/Resolved]

NARRATIVE: CASE EVENT DATE: 20210126
